FAERS Safety Report 4907865-5 (Version None)
Quarter: 2006Q1

REPORT INFORMATION
  Report Type: 
  Country: None (occurrence: None)
  Receive Date: 20060210
  Receipt Date: 20060201
  Transmission Date: 20060701
  Serious: Yes (Hospitalization)
  Sender: FDA-Public Use
  Company Number: PHBS2006SE01746

PATIENT
  Age: 55 Year
  Sex: Male

DRUGS (7)
  1. SANDIMMUNE [Suspect]
     Indication: PSORIASIS
     Dosage: 125 MG, BID
     Route: 048
     Dates: start: 20051026, end: 20051028
  2. SANDIMMUNE [Suspect]
     Dosage: 125 MG/D
     Route: 048
     Dates: end: 20051025
  3. ORALOVITE [Concomitant]
     Route: 048
  4. KAVEPENIN [Concomitant]
     Route: 048
  5. TREO COMP [Concomitant]
     Route: 048
  6. IMOVANE [Concomitant]
  7. BARCAN [Concomitant]
     Route: 048

REACTIONS (7)
  - BRAIN STEM SYNDROME [None]
  - C-REACTIVE PROTEIN INCREASED [None]
  - CONVULSION [None]
  - HEPATIC FUNCTION ABNORMAL [None]
  - INTERNATIONAL NORMALISED RATIO INCREASED [None]
  - LUNG INFILTRATION [None]
  - MENTAL IMPAIRMENT [None]
